FAERS Safety Report 8088719-5 (Version None)
Quarter: 2012Q1

REPORT INFORMATION
  Report Type: 
  Country: None (occurrence: None)
  Receive Date: 20120128
  Receipt Date: 20110607
  Transmission Date: 20120608
  Serious: No
  Sender: FDA-Public Use
  Company Number: US-ABBOTT-11P-163-0730794-00

PATIENT
  Age: 52 Year
  Sex: Female

DRUGS (3)
  1. HUMIRA [Suspect]
     Indication: PSORIASIS
     Dates: start: 20090701, end: 20110604
  2. WATER PILLS [Concomitant]
     Indication: FLUID RETENTION
     Dosage: 1 PILL DAILY
  3. PAXIL [Concomitant]
     Indication: DEPRESSION
     Route: 048

REACTIONS (5)
  - PSORIASIS [None]
  - PRURITUS [None]
  - DRUG INEFFECTIVE [None]
  - HAEMORRHAGE [None]
  - BLISTER INFECTED [None]
